FAERS Safety Report 8766005 (Version 1)
Quarter: 2012Q4

REPORT INFORMATION
  Report Type: 
  Country: US (occurrence: US)
  Receive Date: 20120904
  Receipt Date: 20120904
  Transmission Date: 20130627
  Serious: No
  Sender: FDA-Public Use
  Company Number: US-009507513-1208USA011408

PATIENT

DRUGS (4)
  1. VICTRELIS [Suspect]
     Indication: HEPATITIS C
     Dosage: UNK
     Dates: start: 20120615
  2. REBETOL [Suspect]
     Indication: HEPATITIS C
     Dosage: UNK DF, UNK
     Dates: start: 20120518
  3. PEG-INTRON [Suspect]
     Indication: HEPATITIS C
     Dosage: UNK, 0.5
     Dates: start: 20120518
  4. PEG-INTRON [Suspect]
     Dosage: UNK, 0.4
     Dates: start: 20120518

REACTIONS (12)
  - Anaemia [Unknown]
  - Fatigue [Unknown]
  - Drug dose omission [Unknown]
  - Calcium deficiency [Unknown]
  - Abdominal pain upper [Unknown]
  - Dizziness [Unknown]
  - Feeling hot [Unknown]
  - Weight decreased [Unknown]
  - Abdominal distension [Unknown]
  - Decreased appetite [Unknown]
  - Dysgeusia [Unknown]
  - Anxiety [Unknown]
